FAERS Safety Report 10071181 (Version 1)
Quarter: 2014Q2

REPORT INFORMATION
  Report Type: Spontaneous
  Country: US (occurrence: US)
  Receive Date: 20140410
  Receipt Date: 20140410
  Transmission Date: 20141212
  Serious: No
  Sender: FDA-Public Use
  Company Number: US-BAYER-2014-052263

PATIENT
  Age: 54 Year
  Sex: Female

DRUGS (2)
  1. BAYER EXTRA STRENGTH BACK + BODY PAIN [Suspect]
     Indication: ARTHRITIS
     Dosage: 2 DF, (EVERY 6 HOURS)
     Route: 048
     Dates: start: 20140403
  2. ALEVE CAPLET [Suspect]
     Indication: ARTHRITIS
     Dosage: 1 DF, BID
     Route: 048
     Dates: start: 20140404, end: 20140404

REACTIONS (2)
  - Drug ineffective [None]
  - Drug ineffective [None]
